FAERS Safety Report 6250406-3 (Version None)
Quarter: 2009Q2

REPORT INFORMATION
  Report Type: 
  Country: None (occurrence: None)
  Receive Date: 20090630
  Receipt Date: 20090626
  Transmission Date: 20091009
  Serious: Yes (Other)
  Sender: FDA-Public Use
  Company Number: US-BRISTOL-MYERS SQUIBB COMPANY-14677280

PATIENT
  Age: 81 Year
  Sex: Female

DRUGS (3)
  1. COUMADIN [Suspect]
     Dates: start: 20090501
  2. LANTUS [Suspect]
     Indication: DIABETES MELLITUS MANAGEMENT
     Dosage: SOL FOR INF;1 DF- 18 U HS; ALSO 3TO 4 HS SC FROM MAY09; DOSE REDUCED TO 4TO6 UNITS EACH NIGHT
     Route: 058
  3. NOVOLOG [Suspect]

REACTIONS (4)
  - BLOOD GLUCOSE DECREASED [None]
  - FALL [None]
  - HYPOGLYCAEMIC UNCONSCIOUSNESS [None]
  - WRIST FRACTURE [None]
